FAERS Safety Report 5338678-0 (Version None)
Quarter: 2007Q2

REPORT INFORMATION
  Report Type: 
  Country: None (occurrence: None)
  Receive Date: 20070322
  Receipt Date: 20060501
  Transmission Date: 20071010
  Serious: Yes (Other)
  Sender: FDA-Public Use
  Company Number: 200611366BCC

PATIENT
  Age: 78 Year
  Sex: Female
  Weight: 73.4827 kg

DRUGS (3)
  1. ALEVE [Suspect]
     Indication: ARTHRALGIA
     Dosage: 440-660 MG, IRR, ORAL
     Route: 048
  2. BLOOD PRESSURE MEDICATION [Concomitant]
  3. THYROID TAB [Concomitant]

REACTIONS (3)
  - CARDIAC MURMUR [None]
  - COAGULOPATHY [None]
  - RENAL IMPAIRMENT [None]
